FAERS Safety Report 25059563 (Version 1)
Quarter: 2025Q1

REPORT INFORMATION
  Report Type: Spontaneous
  Country: US (occurrence: US)
  Receive Date: 20250310
  Receipt Date: 20250310
  Transmission Date: 20250409
  Serious: No
  Sender: BIOGEN
  Company Number: US-BIOGEN-2025BI01303310

PATIENT
  Age: 61 Year
  Sex: Male

DRUGS (2)
  1. TYSABRI [Suspect]
     Active Substance: NATALIZUMAB
     Indication: Multiple sclerosis
     Route: 050
  2. LISINOPRIL [Concomitant]
     Active Substance: LISINOPRIL
     Route: 050

REACTIONS (8)
  - Macrocytosis [Unknown]
  - Brain natriuretic peptide increased [Unknown]
  - Hypotension [Unknown]
  - Asthenia [Unknown]
  - Dyspnoea [Unknown]
  - Fatigue [Unknown]
  - Weight increased [Unknown]
  - Arthralgia [Unknown]

NARRATIVE: CASE EVENT DATE: 20240502
